FAERS Safety Report 22765911 (Version 3)
Quarter: 2024Q1

REPORT INFORMATION
  Report Type: Report from Study
  Country: DE (occurrence: DE)
  Receive Date: 20230731
  Receipt Date: 20240122
  Transmission Date: 20240409
  Serious: Yes (Hospitalization, Other)
  Sender: FDA-Public Use
  Company Number: DE-TAKEDA-2023TUS074314

PATIENT
  Age: 43 Year
  Sex: Female
  Weight: 41 kg

DRUGS (16)
  1. TEDUGLUTIDE [Suspect]
     Active Substance: TEDUGLUTIDE
     Indication: Short-bowel syndrome
     Dosage: 2.25 MILLIGRAM, QD
     Route: 042
     Dates: start: 20150410, end: 20230509
  2. TEDUGLUTIDE [Suspect]
     Active Substance: TEDUGLUTIDE
     Indication: Short-bowel syndrome
     Dosage: 2.25 MILLIGRAM, QD
     Route: 042
     Dates: start: 20150410, end: 20230509
  3. TEDUGLUTIDE [Suspect]
     Active Substance: TEDUGLUTIDE
     Indication: Short-bowel syndrome
     Dosage: 2.25 MILLIGRAM, QD
     Route: 042
     Dates: start: 20150410, end: 20230509
  4. TEDUGLUTIDE [Suspect]
     Active Substance: TEDUGLUTIDE
     Indication: Short-bowel syndrome
     Dosage: 2.25 MILLIGRAM, QD
     Route: 042
     Dates: start: 20150410, end: 20230509
  5. TEDUGLUTIDE [Suspect]
     Active Substance: TEDUGLUTIDE
     Dosage: 2.25 MILLIGRAM, 4/WEEK
     Route: 042
     Dates: start: 20230510
  6. TEDUGLUTIDE [Suspect]
     Active Substance: TEDUGLUTIDE
     Dosage: 2.25 MILLIGRAM, 4/WEEK
     Route: 042
     Dates: start: 20230510
  7. TEDUGLUTIDE [Suspect]
     Active Substance: TEDUGLUTIDE
     Dosage: 2.25 MILLIGRAM, 4/WEEK
     Route: 042
     Dates: start: 20230510
  8. TEDUGLUTIDE [Suspect]
     Active Substance: TEDUGLUTIDE
     Dosage: 2.25 MILLIGRAM, 4/WEEK
     Route: 042
     Dates: start: 20230510
  9. Kalinor [Concomitant]
     Indication: Hypokalaemia
     Dosage: UNK UNK, TID
     Route: 048
     Dates: start: 20230616, end: 20230627
  10. IMODIUM [Concomitant]
     Active Substance: LOPERAMIDE HYDROCHLORIDE
     Indication: Abnormal faeces
     Dosage: UNK
     Route: 048
     Dates: start: 20230203
  11. Mucofalk [Concomitant]
     Indication: Abnormal faeces
     Dosage: UNK UNK, BID
     Route: 048
     Dates: start: 20230203
  12. COTRIM [Concomitant]
     Active Substance: SULFAMETHOXAZOLE\TRIMETHOPRIM
     Indication: Urinary tract infection
     Dosage: UNK
     Route: 065
     Dates: start: 202208, end: 20220826
  13. FERROUS GLUCONATE [Concomitant]
     Active Substance: FERROUS GLUCONATE
     Indication: Mineral supplementation
     Dosage: 100 MILLIGRAM, BID
     Route: 048
     Dates: start: 2021, end: 2022
  14. CHOLECALCIFEROL [Concomitant]
     Active Substance: CHOLECALCIFEROL
     Indication: Vitamin D deficiency
     Dosage: UNK UNK, QD
     Route: 048
     Dates: start: 2021, end: 2022
  15. FENTANYL [Concomitant]
     Active Substance: FENTANYL\FENTANYL CITRATE
     Indication: Colitis
     Dosage: UNK
     Route: 061
     Dates: start: 2021, end: 2022
  16. CYANOCOBALAMIN [Concomitant]
     Active Substance: CYANOCOBALAMIN
     Indication: Vitamin supplementation
     Dosage: 1000 MICROGRAM, QD
     Route: 048
     Dates: start: 2021, end: 2022

REACTIONS (6)
  - Acute kidney injury [Recovered/Resolved]
  - Hypokalaemia [Recovered/Resolved]
  - Muscular weakness [Not Recovered/Not Resolved]
  - Fatigue [Not Recovered/Not Resolved]
  - Spinal pain [Not Recovered/Not Resolved]
  - Papillitis [Not Recovered/Not Resolved]

NARRATIVE: CASE EVENT DATE: 20230208
